FAERS Safety Report 8485851-9 (Version None)
Quarter: 2012Q3

REPORT INFORMATION
  Report Type: 
  Country: None (occurrence: None)
  Receive Date: 20120703
  Receipt Date: 20120627
  Transmission Date: 20120928
  Serious: Yes (Other)
  Sender: FDA-Public Use
  Company Number: PHHY2012GB055475

PATIENT
  Age: 50 Year
  Sex: Male
  Weight: 101 kg

DRUGS (9)
  1. TRAMADOL HCL [Concomitant]
  2. PROPRANOLOL [Concomitant]
  3. LITHIUM CARBONATE [Suspect]
  4. ARIPIPRAZOLE [Concomitant]
  5. ACETAMINOPHEN [Concomitant]
  6. VENLAFAXINE [Suspect]
  7. DIAZEPAM [Concomitant]
  8. BISMUTH SUBSALICYLATE IN OIL INJ [Concomitant]
  9. OMACOR [Concomitant]
     Dosage: 2 DF

REACTIONS (1)
  - BLOOD GLUCOSE FLUCTUATION [None]
